FAERS Safety Report 9068544 (Version 1)
Quarter: 2013Q1

REPORT INFORMATION
  Report Type: Spontaneous
  Country: GB (occurrence: GB)
  Receive Date: 20130206
  Receipt Date: 20130206
  Transmission Date: 20140127
  Serious: Yes (Death, Hospitalization)
  Sender: FDA-Public Use
  Company Number: PHHY2013GB008359

PATIENT
  Age: 36 Year
  Sex: Male

DRUGS (9)
  1. HYDRALAZINE [Suspect]
     Indication: HYPERTENSION
     Dosage: 50 MG, BID
  2. METHYLDOPA [Suspect]
     Indication: HYPERTENSION
     Dosage: 1 G, TID
  3. ATENOLOL [Suspect]
     Indication: HYPERTENSION
     Dosage: 100 MG, QD
  4. LOSARTAN [Suspect]
     Indication: HYPERTENSION
     Dosage: 100 MG, QD
  5. PERINDOPRIL [Suspect]
     Indication: HYPERTENSION
     Dosage: 8 MG, QD
  6. SPIRONOLACTONE [Suspect]
     Indication: HYPERTENSION
     Dosage: 100 MG, QD
  7. FUROSEMIDE [Suspect]
     Indication: HYPERTENSION
     Dosage: 40 MG, QD
  8. NIFEDIPINE [Suspect]
     Indication: HYPERTENSION
     Dosage: 90 MG, QD
  9. DEXAMETHASONE [Concomitant]

REACTIONS (4)
  - Left ventricular hypertrophy [Fatal]
  - Arrhythmia [Fatal]
  - Hypertension [Unknown]
  - Headache [Unknown]
